FAERS Safety Report 21741196 (Version 1)
Quarter: 2022Q4

REPORT INFORMATION
  Report Type: Spontaneous
  Country: US (occurrence: None)
  Receive Date: 20221215
  Receipt Date: 20221215
  Transmission Date: 20230112
  Serious: Yes (Hospitalization)
  Sender: FDA-Public Use
  Company Number: None

PATIENT
  Sex: Male

DRUGS (6)
  1. CYCLOSPORINE [Suspect]
     Active Substance: CYCLOSPORINE
     Indication: Aplastic anaemia
     Dosage: 10 MG ORAL??TAKE 2 CAPSULES BY MOUTH EVERY MORNING AND 1 CAPSULE EVERY EVENING
     Route: 048
     Dates: start: 20210505
  2. AMICAR TAB [Concomitant]
  3. FLUTICASONE SPR [Concomitant]
  4. LEVOTHYROXIN TAB [Concomitant]
  5. LEXAPRO TAB [Concomitant]
  6. PROMACTA [Concomitant]
     Active Substance: ELTROMBOPAG OLAMINE

REACTIONS (1)
  - Discomfort [None]
